FAERS Safety Report 8967961 (Version 1)
Quarter: 2012Q4

REPORT INFORMATION
  Report Type: Report from Study
  Country: NL (occurrence: NL)
  Receive Date: 20121217
  Receipt Date: 20121217
  Transmission Date: 20130627
  Serious: Yes (Hospitalization)
  Sender: FDA-Public Use
  Company Number: NL-BAXTER-2012BAX027088

PATIENT
  Age: 65 Year
  Sex: Female
  Weight: 65 kg

DRUGS (18)
  1. ENDOXAN I.V., POEDER VOOR OPLOSSING VOOR INJECTIE 200, 500, 1000 MG [Suspect]
     Indication: B-CELL LYMPHOMA
     Route: 042
     Dates: start: 20100712
  2. ENDOXAN I.V., POEDER VOOR OPLOSSING VOOR INJECTIE 200, 500, 1000 MG [Suspect]
     Route: 042
     Dates: start: 20100906
  3. ENDOXAN I.V., POEDER VOOR OPLOSSING VOOR INJECTIE 200, 500, 1000 MG [Suspect]
     Route: 042
     Dates: start: 20100927
  4. RITUXIMAB [Suspect]
     Indication: B-CELL LYMPHOMA
     Route: 042
     Dates: start: 20100712
  5. RITUXIMAB [Suspect]
     Route: 042
     Dates: start: 20100906
  6. RITUXIMAB [Suspect]
     Route: 042
     Dates: start: 20100927
  7. PREDNISONE [Suspect]
     Indication: B-CELL LYMPHOMA
     Route: 048
     Dates: start: 20100701
  8. PREDNISONE [Suspect]
     Route: 048
     Dates: start: 20100906
  9. PREDNISONE [Suspect]
     Route: 048
     Dates: start: 20100927
  10. DOXORUBICIN [Suspect]
     Indication: B-CELL LYMPHOMA
     Route: 042
     Dates: start: 20100712
  11. DOXORUBICIN [Suspect]
     Route: 042
     Dates: start: 20100906
  12. DOXORUBICIN [Suspect]
     Route: 042
     Dates: start: 20100927
  13. VINCRISTINE [Suspect]
     Indication: B-CELL LYMPHOMA
     Route: 042
     Dates: start: 20100712
  14. VINCRISTINE [Suspect]
     Route: 042
     Dates: start: 20100906
  15. VINCRISTINE [Suspect]
     Route: 042
     Dates: start: 20100927
  16. G-CSF [Suspect]
     Indication: B-CELL LYMPHOMA
     Route: 058
     Dates: start: 20100715
  17. G-CSF [Suspect]
     Dosage: 3 X 33.6 MIE
     Route: 058
     Dates: start: 20100909
  18. G-CSF [Suspect]
     Route: 058
     Dates: start: 20100930

REACTIONS (2)
  - Neutropenic infection [Recovered/Resolved]
  - Febrile neutropenia [Recovered/Resolved]
